FAERS Safety Report 7677078-5 (Version None)
Quarter: 2011Q3

REPORT INFORMATION
  Report Type: 
  Country: None (occurrence: None)
  Receive Date: 20110810
  Receipt Date: 20110810
  Transmission Date: 20111222
  Serious: Yes (Hospitalization)
  Sender: FDA-Public Use
  Company Number: None

PATIENT
  Age: 78 Year
  Sex: Male
  Weight: 92 kg

DRUGS (2)
  1. ATENOLOL [Suspect]
     Indication: HYPERTENSION
     Dosage: 12.5 MG EVERY DAY PO
     Route: 048
     Dates: start: 20091001, end: 20110721
  2. MEPERIDINE HCL [Suspect]
     Indication: SURGERY
     Dosage: 50 MG ONCE IV
     Route: 042
     Dates: start: 20110721, end: 20110721

REACTIONS (1)
  - BRADYCARDIA [None]
